FAERS Safety Report 6922231-9 (Version None)
Quarter: 2010Q3

REPORT INFORMATION
  Report Type: 
  Country: None (occurrence: None)
  Receive Date: 20100813
  Receipt Date: 20100729
  Transmission Date: 20110219
  Serious: Yes (Life-Threatening, Hospitalization, Other)
  Sender: FDA-Public Use
  Company Number: DE-RANBAXY-2010RR-35242

PATIENT
  Age: 89 Year
  Sex: Male
  Weight: 92 kg

DRUGS (2)
  1. SIMVASTATIN [Suspect]
     Dosage: 40 MG, QD
     Route: 048
     Dates: start: 20080101, end: 20100401
  2. CORDAREX, 200 MG TABL, SANOFI AVENTIS [Suspect]
     Dosage: UNK
     Route: 048
     Dates: start: 20000101

REACTIONS (1)
  - RENAL FAILURE ACUTE [None]
